FAERS Safety Report 24723212 (Version 1)
Quarter: 2024Q4

REPORT INFORMATION
  Report Type: Other
  Country: CA (occurrence: CA)
  Receive Date: 20241211
  Receipt Date: 20241211
  Transmission Date: 20250114
  Serious: Yes (Other)
  Sender: PFIZER
  Company Number: CA-PFIZER INC-202400318990

PATIENT
  Age: 74 Year
  Sex: Female

DRUGS (8)
  1. TRANEXAMIC ACID [Suspect]
     Active Substance: TRANEXAMIC ACID
     Indication: Haemorrhage
     Dosage: 1000 MG, EVERY 8 HOURS
     Route: 048
  2. ASPIRIN [Concomitant]
     Active Substance: ASPIRIN
  3. DESMOPRESSIN [Concomitant]
     Active Substance: DESMOPRESSIN
  4. HYDROXYUREA [Concomitant]
     Active Substance: HYDROXYUREA
  5. IRON [Concomitant]
     Active Substance: IRON
  6. PERINDOPRIL [Concomitant]
     Active Substance: PERINDOPRIL
  7. HUMAN PLASMA [Concomitant]
     Active Substance: HUMAN PLASMA
  8. HUMAN RED BLOOD CELL [Concomitant]
     Active Substance: HUMAN RED BLOOD CELL

REACTIONS (6)
  - Fatigue [Not Recovered/Not Resolved]
  - Haemoglobin decreased [Not Recovered/Not Resolved]
  - Haemorrhage [Not Recovered/Not Resolved]
  - Iron deficiency [Not Recovered/Not Resolved]
  - Tachycardia [Not Recovered/Not Resolved]
  - Thrombocytosis [Not Recovered/Not Resolved]
